FAERS Safety Report 8660638 (Version 2)
Quarter: 2013Q4

REPORT INFORMATION
  Report Type: Spontaneous
  Country: TR (occurrence: TR)
  Receive Date: 20120711
  Receipt Date: 20131105
  Transmission Date: 20140711
  Serious: Yes (Other)
  Sender: FDA-Public Use
  Company Number: TR-009507513-1207TUR000276

PATIENT
  Age: 29 Year
  Sex: Female
  Weight: 100 kg

DRUGS (1)
  1. JANUVIA 50MG [Suspect]
     Dosage: UNK, QD

REACTIONS (1)
  - Pharyngitis [Recovered/Resolved]
